FAERS Safety Report 17875267 (Version 1)
Quarter: 2020Q2

REPORT INFORMATION
  Report Type: Spontaneous
  Country: US (occurrence: US)
  Receive Date: 20200609
  Receipt Date: 20200609
  Transmission Date: 20200714
  Serious: Yes (Hospitalization)
  Sender: FDA-Public Use
  Company Number: None

PATIENT
  Age: 53 Year
  Sex: Female

DRUGS (12)
  1. LYRICA CAP 100 MG [Concomitant]
  2. ADVIL CAP 200 MG [Concomitant]
  3. PROTONIX TAB 20 MG [Concomitant]
  4. CELLCEPT CAP 250 MG [Concomitant]
  5. CUBICIN SOL 500 MG [Concomitant]
  6. CELEBREX XAP 100 MG [Concomitant]
  7. TYLENOL TAB 500 MG [Concomitant]
  8. NEXIUM CAP 20 MG [Concomitant]
  9. SILDENAFIL. [Suspect]
     Active Substance: SILDENAFIL
     Indication: PULMONARY ARTERIAL HYPERTENSION
     Route: 048
     Dates: start: 20150710
  10. OXYCODONE CAP 5 MG [Concomitant]
  11. PREDNISONE TAB 10 MG [Concomitant]
  12. HYDROCO/APAP TAB 5-325 MG [Concomitant]

REACTIONS (1)
  - Knee operation [None]

NARRATIVE: CASE EVENT DATE: 20200528
